FAERS Safety Report 9870943 (Version 2)
Quarter: 2014Q1

REPORT INFORMATION
  Report Type: Spontaneous
  Country: US (occurrence: US)
  Receive Date: 20140205
  Receipt Date: 20140303
  Transmission Date: 20141002
  Serious: Yes (Other)
  Sender: FDA-Public Use
  Company Number: US-ROXANE LABORATORIES, INC.-2014-RO-00141RO

PATIENT
  Age: 49 Year
  Sex: Female

DRUGS (1)
  1. QUETIAPINE FUMARATE [Suspect]
     Indication: PRODUCT USED FOR UNKNOWN INDICATION
     Dosage: 200 MG
     Route: 065
     Dates: start: 20130321

REACTIONS (7)
  - Arrhythmia [Unknown]
  - Ventricular extrasystoles [Unknown]
  - Presyncope [Unknown]
  - Fatigue [Unknown]
  - Night sweats [Unknown]
  - Decreased appetite [Unknown]
  - Asthenia [Unknown]
